FAERS Safety Report 17839913 (Version 1)
Quarter: 2020Q2

REPORT INFORMATION
  Report Type: Report from Study
  Country: US (occurrence: US)
  Receive Date: 20200529
  Receipt Date: 20200529
  Transmission Date: 20200714
  Serious: Yes (Other)
  Sender: FDA-Public Use
  Company Number: US-MYLANLABS-2020M1052558

PATIENT

DRUGS (2)
  1. VALPROIC ACID. [Suspect]
     Active Substance: VALPROIC ACID
     Indication: GLIOMA
     Dosage: ESCALATED BY 5 MG/KG/DAY EVERY 3-5 DAYS TO..
     Route: 065
  2. BEVACIZUMAB. [Suspect]
     Active Substance: BEVACIZUMAB
     Indication: GLIOMA
     Dosage: 10 MILLIGRAM/KILOGRAM, BIWEEKLY
     Route: 042

REACTIONS (2)
  - Off label use [Unknown]
  - Tumour haemorrhage [Unknown]
